FAERS Safety Report 21300028 (Version 1)
Quarter: 2022Q3

REPORT INFORMATION
  Report Type: Spontaneous
  Country: US (occurrence: US)
  Receive Date: 20220906
  Receipt Date: 20220906
  Transmission Date: 20221026
  Serious: No
  Sender: FDA-Public Use
  Company Number: US-JNJFOC-20220850742

PATIENT
  Age: 20 Year
  Sex: Female

DRUGS (8)
  1. ZYRTEC [Suspect]
     Active Substance: CETIRIZINE HYDROCHLORIDE
     Indication: Urticaria
     Route: 065
  2. ZYRTEC [Suspect]
     Active Substance: CETIRIZINE HYDROCHLORIDE
     Indication: Anaphylactic reaction
  3. PEPCID [Suspect]
     Active Substance: FAMOTIDINE
     Indication: Urticaria
     Route: 065
  4. PEPCID [Suspect]
     Active Substance: FAMOTIDINE
     Indication: Anaphylactic reaction
  5. ALLEGRA [Concomitant]
     Active Substance: FEXOFENADINE HYDROCHLORIDE
     Indication: Urticaria
     Route: 065
  6. ALLEGRA [Concomitant]
     Active Substance: FEXOFENADINE HYDROCHLORIDE
     Indication: Anaphylactic reaction
  7. PFIZER-BIONTECH COVID-19 VACCINE [Concomitant]
     Active Substance: TOZINAMERAN
     Indication: Immunisation
     Dosage: 2ND DOSE PFIZER VACCINE
     Route: 065
     Dates: start: 20210611
  8. PFIZER-BIONTECH COVID-19 VACCINE [Concomitant]
     Active Substance: TOZINAMERAN
     Dosage: 1ST DOSE BOOSTER OF PFIZER VACCINE
     Route: 065
     Dates: start: 20220104

REACTIONS (1)
  - Product use in unapproved indication [Unknown]
